FAERS Safety Report 12556215 (Version 2)
Quarter: 2016Q3

REPORT INFORMATION
  Report Type: Spontaneous
  Country: DE (occurrence: DE)
  Receive Date: 20160714
  Receipt Date: 20160715
  Transmission Date: 20161109
  Serious: Yes (Death, Other)
  Sender: FDA-Public Use
  Company Number: DE-PFIZER INC-2016140717

PATIENT
  Age: 75 Year
  Sex: Female
  Weight: 60 kg

DRUGS (3)
  1. TAVOR (LORAZEPAM) [Suspect]
     Active Substance: LORAZEPAM
     Indication: SLEEP DISORDER
     Dosage: 0.5 MG, 1X/DAY FOR MONTHS
     Route: 048
  2. TAVOR (LORAZEPAM) [Suspect]
     Active Substance: LORAZEPAM
     Dosage: 100 DF, UNK
  3. VOMEX-A [Suspect]
     Active Substance: DIMENHYDRINATE
     Route: 048

REACTIONS (6)
  - Dependence [Unknown]
  - Suicidal ideation [Unknown]
  - Overdose [Unknown]
  - Completed suicide [Fatal]
  - Personality change [Unknown]
  - Suicide attempt [Unknown]

NARRATIVE: CASE EVENT DATE: 2015
